FAERS Safety Report 10037023 (Version 1)
Quarter: 2014Q1

REPORT INFORMATION
  Report Type: Spontaneous
  Country: US (occurrence: US)
  Receive Date: 20140326
  Receipt Date: 20140326
  Transmission Date: 20141002
  Serious: No
  Sender: FDA-Public Use
  Company Number: US-BIOGENIDEC-2014BI026976

PATIENT
  Age: 71 Year
  Sex: Female

DRUGS (6)
  1. TECFIDERA [Suspect]
     Indication: MULTIPLE SCLEROSIS
     Route: 048
  2. ACTONEL [Concomitant]
  3. DYMISTA [Concomitant]
  4. HYDROCHLOROTHIAZIDE [Concomitant]
  5. SERTRALINE HCL [Concomitant]
  6. SIMVASTATIN [Concomitant]

REACTIONS (2)
  - Skin atrophy [Unknown]
  - Hair colour changes [Unknown]
